FAERS Safety Report 16759802 (Version 1)
Quarter: 2019Q3

REPORT INFORMATION
  Report Type: Spontaneous
  Country: US (occurrence: US)
  Receive Date: 20190830
  Receipt Date: 20190830
  Transmission Date: 20191005
  Serious: Yes (Other)
  Sender: FDA-Public Use
  Company Number: US-009507513-1908USA010097

PATIENT
  Sex: Male

DRUGS (1)
  1. CARBIDOPA (+) LEVODOPA [Suspect]
     Active Substance: CARBIDOPA\LEVODOPA
     Dosage: UNK
     Route: 048

REACTIONS (4)
  - Aphonia [Recovered/Resolved]
  - Drug intolerance [Recovered/Resolved]
  - Motor dysfunction [Recovered/Resolved]
  - Neuropathy peripheral [Recovered/Resolved]
